FAERS Safety Report 23079374 (Version 2)
Quarter: 2025Q2

REPORT INFORMATION
  Report Type: Spontaneous
  Country: US (occurrence: US)
  Receive Date: 20231018
  Receipt Date: 20250415
  Transmission Date: 20250716
  Serious: Yes (Life-Threatening, Hospitalization)
  Sender: MYLAN
  Company Number: US-MYLANLABS-2023M1108790

PATIENT
  Age: 63 Year
  Sex: Female

DRUGS (4)
  1. PREDNISONE [Suspect]
     Active Substance: PREDNISONE
     Indication: Asthma-chronic obstructive pulmonary disease overlap syndrome
  2. PREDNISONE [Suspect]
     Active Substance: PREDNISONE
     Route: 065
  3. PREDNISONE [Suspect]
     Active Substance: PREDNISONE
     Route: 065
  4. PREDNISONE [Suspect]
     Active Substance: PREDNISONE

REACTIONS (5)
  - Acute respiratory failure [Unknown]
  - Metabolic encephalopathy [Unknown]
  - Strongyloidiasis [Unknown]
  - Pseudomonas infection [Unknown]
  - Septic shock [Unknown]
